FAERS Safety Report 6554858-0 (Version None)
Quarter: 2010Q1

REPORT INFORMATION
  Report Type: 
  Country: None (occurrence: None)
  Receive Date: 20100125
  Receipt Date: 20100120
  Transmission Date: 20100710
  Serious: Yes (Hospitalization)
  Sender: FDA-Public Use
  Company Number: 1000011384

PATIENT
  Age: 79 Year
  Sex: Female

DRUGS (22)
  1. CELEXA [Suspect]
     Indication: ANXIETY
     Dosage: SEE IMAGE
     Route: 048
     Dates: start: 20080101, end: 20090101
  2. CELEXA [Suspect]
     Indication: DEPRESSION
     Dosage: SEE IMAGE
     Route: 048
     Dates: start: 20080101, end: 20090101
  3. CELEXA [Suspect]
     Indication: ANXIETY
     Dosage: SEE IMAGE
     Route: 048
     Dates: start: 20090101, end: 20090101
  4. CELEXA [Suspect]
     Indication: DEPRESSION
     Dosage: SEE IMAGE
     Route: 048
     Dates: start: 20090101, end: 20090101
  5. CELEXA [Suspect]
     Indication: ANXIETY
     Dosage: SEE IMAGE
     Route: 048
     Dates: start: 20090101, end: 20090101
  6. CELEXA [Suspect]
     Indication: DEPRESSION
     Dosage: SEE IMAGE
     Route: 048
     Dates: start: 20090101, end: 20090101
  7. CELEXA [Suspect]
     Indication: ANXIETY
     Dosage: SEE IMAGE
     Route: 048
     Dates: start: 20090101, end: 20090101
  8. CELEXA [Suspect]
     Indication: DEPRESSION
     Dosage: SEE IMAGE
     Route: 048
     Dates: start: 20090101, end: 20090101
  9. CELEXA [Suspect]
     Indication: ANXIETY
     Dosage: SEE IMAGE
     Route: 048
     Dates: start: 20090101, end: 20090101
  10. CELEXA [Suspect]
     Indication: DEPRESSION
     Dosage: SEE IMAGE
     Route: 048
     Dates: start: 20090101, end: 20090101
  11. CELEXA [Suspect]
     Indication: ANXIETY
     Dosage: SEE IMAGE
     Route: 048
     Dates: start: 20090101, end: 20091215
  12. CELEXA [Suspect]
     Indication: DEPRESSION
     Dosage: SEE IMAGE
     Route: 048
     Dates: start: 20090101, end: 20091215
  13. ENABLEX [Concomitant]
  14. METOPROLOL TARTRATE [Concomitant]
  15. BONIVA [Concomitant]
  16. HYDROCODONE [Concomitant]
  17. ASPIRIN [Concomitant]
  18. CILOSTAZOL [Concomitant]
  19. LIPITOR [Concomitant]
  20. PERIOSTAT [Concomitant]
  21. ALLOPURINOL [Concomitant]
  22. NAPROXEN [Concomitant]

REACTIONS (9)
  - AGITATION [None]
  - ANXIETY [None]
  - ASTHENIA [None]
  - CONFUSIONAL STATE [None]
  - DIZZINESS [None]
  - FALL [None]
  - HEADACHE [None]
  - INSOMNIA [None]
  - PSYCHOMOTOR HYPERACTIVITY [None]
